FAERS Safety Report 9819459 (Version 3)
Quarter: 2014Q1

REPORT INFORMATION
  Report Type: Spontaneous
  Country: US (occurrence: None)
  Receive Date: 20131223
  Receipt Date: 20140228
  Transmission Date: 20141002
  Serious: Yes (Other)
  Sender: FDA-Public Use
  Company Number: 220968

PATIENT
  Age: 41 Year
  Sex: Female

DRUGS (6)
  1. PICATO [Suspect]
     Indication: ACTINIC KERATOSIS
     Route: 061
     Dates: start: 20130314, end: 20130316
  2. MVI (MVI) [Concomitant]
  3. BABY  ASA (ACETYLSALICYLIC ACID) [Concomitant]
  4. ZYRTEC (CETIRIZINE HYDROCHLORIDE) [Concomitant]
  5. SINGULAIR (MONTELUKAST) 10MG [Concomitant]
  6. VALTREX (VALACICLOVIR HYDROCHLORIDE) [Concomitant]

REACTIONS (6)
  - Application site paraesthesia [None]
  - Application site pain [None]
  - Application site erythema [None]
  - Eyelid oedema [None]
  - Application site swelling [None]
  - Drug administration error [None]
